FAERS Safety Report 21249942 (Version 1)
Quarter: 2022Q3

REPORT INFORMATION
  Report Type: Spontaneous
  Country: FR (occurrence: FR)
  Receive Date: 20220824
  Receipt Date: 20220824
  Transmission Date: 20221027
  Serious: Yes (Other)
  Sender: FDA-Public Use
  Company Number: None

PATIENT
  Age: 55 Year
  Sex: Male
  Weight: 69.3 kg

DRUGS (1)
  1. KEYTRUDA [Suspect]
     Active Substance: PEMBROLIZUMAB
     Indication: Non-small cell lung cancer
     Dosage: 2 MILLIGRAM/KILOGRAM, 1 CYCLICAL, (67 CYCLES)
     Route: 042
     Dates: start: 20180628, end: 20220513

REACTIONS (1)
  - Lung consolidation [Recovering/Resolving]

NARRATIVE: CASE EVENT DATE: 20220620
